FAERS Safety Report 9195969 (Version 1)
Quarter: 2013Q1

REPORT INFORMATION
  Report Type: Spontaneous
  Country: NL (occurrence: NL)
  Receive Date: 20130328
  Receipt Date: 20130328
  Transmission Date: 20140127
  Serious: Yes (Hospitalization)
  Sender: FDA-Public Use
  Company Number: PHHY2013NL028347

PATIENT
  Sex: Male
  Weight: 84 kg

DRUGS (5)
  1. LESCOL [Suspect]
     Dosage: 20 MG, DAILY BID
     Dates: start: 20121211, end: 20130304
  2. ATRIPLA [Concomitant]
     Dosage: BID DAILY
     Dates: start: 20120305
  3. RAMIPRIL [Concomitant]
     Dosage: 10 MG, DAILY BID
     Dates: start: 20110916
  4. LANTUS [Concomitant]
     Dosage: 100 U/ML, PATTERN 3ML, TIMES PER 28 IU (28U)
     Dates: start: 20110916
  5. NOVORAPID [Concomitant]
     Dosage: 100 U/ML, TIMES PER 10 IU (10U)
     Dates: start: 20110916

REACTIONS (1)
  - Hypoglycaemic unconsciousness [Recovered/Resolved]
